FAERS Safety Report 10886517 (Version 4)
Quarter: 2015Q4

REPORT INFORMATION
  Report Type: Report from Study
  Country: CA (occurrence: CA)
  Receive Date: 20150304
  Receipt Date: 20151231
  Transmission Date: 20160304
  Serious: No
  Sender: FDA-Public Use
  Company Number: PHHY2014CA075699

PATIENT
  Age: 53 Year
  Sex: Male

DRUGS (3)
  1. CYMBALTA [Concomitant]
     Active Substance: DULOXETINE HYDROCHLORIDE
     Indication: PRODUCT USED FOR UNKNOWN INDICATION
     Dosage: UNK
     Route: 065
  2. TASIGNA [Suspect]
     Active Substance: NILOTINIB
     Indication: CHRONIC MYELOID LEUKAEMIA
     Dosage: 300 MG, BID
     Route: 048
     Dates: start: 20140523
  3. TASIGNA [Suspect]
     Active Substance: NILOTINIB
     Dosage: 200 MG, BID
     Route: 048

REACTIONS (10)
  - Incorrect drug administration duration [Unknown]
  - Dyspnoea [Recovered/Resolved]
  - Dysphonia [Unknown]
  - Nasopharyngitis [Recovered/Resolved]
  - Hepatic enzyme increased [Recovering/Resolving]
  - Throat irritation [Unknown]
  - Pain [Unknown]
  - Bone pain [Unknown]
  - Alopecia [Unknown]
  - Anaemia [Unknown]

NARRATIVE: CASE EVENT DATE: 20151224
